FAERS Safety Report 5493698-0 (Version None)
Quarter: 2007Q4

REPORT INFORMATION
  Report Type: 
  Country: None (occurrence: None)
  Receive Date: 20071023
  Receipt Date: 20071015
  Transmission Date: 20080405
  Serious: Yes (Disabling)
  Sender: FDA-Public Use
  Company Number: CN-ASTRAZENECA-2007AP06488

PATIENT

DRUGS (2)
  1. NEXIUM [Suspect]
  2. ANTIBIOTICS [Concomitant]

REACTIONS (2)
  - DEAFNESS [None]
  - TINNITUS [None]
